FAERS Safety Report 6034884-0 (Version None)
Quarter: 2009Q1

REPORT INFORMATION
  Report Type: 
  Country: None (occurrence: None)
  Receive Date: 20090112
  Receipt Date: 20090107
  Transmission Date: 20090719
  Serious: Yes (Death)
  Sender: FDA-Public Use
  Company Number: JP-SANOFI-SYNTHELABO-A01200811872

PATIENT
  Age: 68 Year
  Sex: Male

DRUGS (6)
  1. ASPIRIN [Concomitant]
     Indication: THROMBOSIS PROPHYLAXIS
     Route: 048
     Dates: start: 20080919
  2. ASPIRIN [Concomitant]
     Indication: PERCUTANEOUS CORONARY INTERVENTION
     Route: 048
     Dates: start: 20080919
  3. ASPIRIN [Concomitant]
     Indication: ANGINA UNSTABLE
     Route: 048
     Dates: start: 20080919
  4. PLAVIX [Suspect]
     Indication: THROMBOSIS PROPHYLAXIS
     Dosage: 300 MG ONCE FOLLOWED BY 50 MG DAILY
     Route: 048
     Dates: start: 20080919
  5. PLAVIX [Suspect]
     Indication: PERCUTANEOUS CORONARY INTERVENTION
     Dosage: 300 MG ONCE FOLLOWED BY 50 MG DAILY
     Route: 048
     Dates: start: 20080919
  6. PLAVIX [Suspect]
     Indication: ANGINA UNSTABLE
     Dosage: 300 MG ONCE FOLLOWED BY 50 MG DAILY
     Route: 048
     Dates: start: 20080919

REACTIONS (1)
  - SUDDEN DEATH [None]
